FAERS Safety Report 6146820-7 (Version None)
Quarter: 2009Q2

REPORT INFORMATION
  Report Type: 
  Country: None (occurrence: None)
  Receive Date: 20090406
  Receipt Date: 20090406
  Transmission Date: 20091009
  Serious: Yes (Hospitalization, Disabling)
  Sender: FDA-Public Use
  Company Number: None

PATIENT
  Age: 52 Year
  Sex: Female
  Weight: 58.9676 kg

DRUGS (2)
  1. LEVAQUIN [Suspect]
     Indication: PLEURISY
     Dosage: 2 X PER DAY
     Dates: start: 20081101, end: 20081110
  2. LEVAQUIN [Suspect]
     Indication: PNEUMONIA
     Dosage: 2 X PER DAY
     Dates: start: 20081101, end: 20081110

REACTIONS (1)
  - TENDONITIS [None]
